FAERS Safety Report 25745479 (Version 2)
Quarter: 2025Q3

REPORT INFORMATION
  Report Type: Spontaneous
  Country: JP (occurrence: JP)
  Receive Date: 20250901
  Receipt Date: 20250924
  Transmission Date: 20251021
  Serious: Yes (Hospitalization, Other)
  Sender: GLAXOSMITHKLINE
  Company Number: JP-GLAXOSMITHKLINE INC-JP2025JPN109433

PATIENT
  Age: 25 Year
  Sex: Female

DRUGS (1)
  1. FLOLAN [Suspect]
     Active Substance: EPOPROSTENOL SODIUM
     Indication: Pulmonary hypertension

REACTIONS (8)
  - Thyrotoxic crisis [Unknown]
  - Graves^ disease [Unknown]
  - Hyperthyroidism [Recovering/Resolving]
  - Tachycardia [Unknown]
  - Pericardial effusion [Unknown]
  - Cardiac failure [Unknown]
  - Gastrointestinal disorder [Unknown]
  - Malabsorption [Unknown]
